FAERS Safety Report 4286525-0 (Version None)
Quarter: 2004Q1

REPORT INFORMATION
  Report Type: 
  Country: None (occurrence: None)
  Receive Date: 20040204
  Receipt Date: 20040119
  Transmission Date: 20041129
  Serious: Yes (Hospitalization)
  Sender: FDA-Public Use
  Company Number: DSA_23878_2004

PATIENT
  Age: 54 Year
  Sex: Male

DRUGS (1)
  1. TEVETEN [Suspect]
     Indication: HYPERTENSION

REACTIONS (2)
  - ABDOMINAL PAIN UPPER [None]
  - CHOLECYSTECTOMY [None]
